FAERS Safety Report 16720784 (Version 1)
Quarter: 2019Q3

REPORT INFORMATION
  Report Type: Spontaneous
  Country: US (occurrence: US)
  Receive Date: 20190820
  Receipt Date: 20190820
  Transmission Date: 20191005
  Serious: No
  Sender: FDA-Public Use
  Company Number: US-ELI_LILLY_AND_COMPANY-US201908004496

PATIENT
  Sex: Female
  Weight: 99 kg

DRUGS (6)
  1. FENTANYL. [Suspect]
     Active Substance: FENTANYL
     Indication: HEADACHE
  2. FENTANYL. [Suspect]
     Active Substance: FENTANYL
     Indication: NECK PAIN
  3. FENTANYL. [Suspect]
     Active Substance: FENTANYL
     Indication: MUSCULOSKELETAL PAIN
  4. FENTANYL. [Suspect]
     Active Substance: FENTANYL
     Indication: MIGRAINE
     Route: 065
  5. BOTOX [Concomitant]
     Active Substance: ONABOTULINUMTOXINA
     Dosage: UNK
     Route: 065
  6. EMGALITY [Suspect]
     Active Substance: GALCANEZUMAB-GNLM
     Indication: PRODUCT USED FOR UNKNOWN INDICATION
     Dosage: UNK
     Route: 065
     Dates: start: 201904

REACTIONS (12)
  - Migraine [Recovering/Resolving]
  - Headache [Recovering/Resolving]
  - Drug hypersensitivity [Unknown]
  - Back pain [Unknown]
  - Post lumbar puncture syndrome [Unknown]
  - Musculoskeletal pain [Recovering/Resolving]
  - Diarrhoea [Unknown]
  - Dyspnoea [Unknown]
  - Neck pain [Recovering/Resolving]
  - Vomiting [Unknown]
  - Weight decreased [Unknown]
  - Cerebrospinal fluid leakage [Unknown]
